FAERS Safety Report 6576515-7 (Version None)
Quarter: 2010Q1

REPORT INFORMATION
  Report Type: 
  Country: None (occurrence: None)
  Receive Date: 20100210
  Receipt Date: 20100129
  Transmission Date: 20100710
  Serious: Yes (Hospitalization)
  Sender: FDA-Public Use
  Company Number: JP-AMGEN-US378492

PATIENT
  Sex: Male
  Weight: 76 kg

DRUGS (11)
  1. ENBREL [Suspect]
     Indication: RHEUMATOID ARTHRITIS
     Route: 058
     Dates: start: 20081218, end: 20091130
  2. CELECOXIB [Suspect]
     Indication: RHEUMATOID ARTHRITIS
     Route: 048
     Dates: start: 20081028, end: 20091130
  3. CELECOXIB [Suspect]
     Dosage: 2 CAPSULES IN 2 DIVIDED DOSES
     Dates: start: 20070401
  4. RHEUMATREX [Suspect]
     Indication: RHEUMATOID ARTHRITIS
     Dosage: 2.5 MG EVERY
     Route: 048
     Dates: start: 20070401
  5. RHEUMATREX [Suspect]
     Dates: start: 20081028
  6. RHEUMATREX [Suspect]
     Route: 048
     Dates: start: 20081125, end: 20091130
  7. FOLIAMIN [Suspect]
     Indication: RHEUMATOID ARTHRITIS
     Route: 048
     Dates: start: 20091125, end: 20091130
  8. PREDONINE [Concomitant]
     Indication: RHEUMATOID ARTHRITIS
     Dosage: 5 MG EVERY
     Route: 048
     Dates: start: 20070115
  9. PREDONINE [Concomitant]
     Dosage: 10 MG EVERY
     Route: 048
     Dates: start: 20070726
  10. PREDONINE [Concomitant]
     Dosage: 5 MG EVERY
     Route: 048
     Dates: start: 20081125
  11. PREDONINE [Concomitant]
     Route: 048
     Dates: start: 20081202

REACTIONS (1)
  - RIGHT VENTRICULAR FAILURE [None]
